FAERS Safety Report 6439764-4 (Version None)
Quarter: 2009Q4

REPORT INFORMATION
  Report Type: 
  Country: None (occurrence: None)
  Receive Date: 20091112
  Receipt Date: 20091112
  Transmission Date: 20100525
  Serious: Yes (Hospitalization)
  Sender: FDA-Public Use
  Company Number: None

PATIENT
  Age: 76 Year
  Sex: Male
  Weight: 74.5 kg

DRUGS (1)
  1. TERAZOSIN HCL [Suspect]
     Dosage: 5 MG EVERY DAY PO
     Route: 048
     Dates: start: 20090428, end: 20091002

REACTIONS (2)
  - HYPOTENSION [None]
  - SYNCOPE [None]
